FAERS Safety Report 9537692 (Version 1)
Quarter: 2013Q3

REPORT INFORMATION
  Report Type: Spontaneous
  Country: FR (occurrence: FR)
  Receive Date: 20130919
  Receipt Date: 20130919
  Transmission Date: 20140515
  Serious: Yes (Hospitalization)
  Sender: FDA-Public Use
  Company Number: FR-PFIZER INC-2013263245

PATIENT
  Age: 70 Year
  Sex: Female

DRUGS (6)
  1. REVATIO [Suspect]
     Dosage: 20 MG DAILY
     Route: 048
     Dates: start: 2012
  2. INEXIUM [Concomitant]
     Dosage: UNK
  3. CORTANCYL [Concomitant]
     Dosage: UNK
  4. CACIT D3 [Concomitant]
  5. GAVISCON [Concomitant]
     Dosage: UNK
  6. FLUOXETINE [Concomitant]
     Dosage: UNK

REACTIONS (2)
  - Hyperhidrosis [Unknown]
  - General physical health deterioration [Unknown]
